FAERS Safety Report 4522339-1 (Version None)
Quarter: 2004Q4

REPORT INFORMATION
  Report Type: 
  Country: None (occurrence: None)
  Receive Date: 20041209
  Receipt Date: 20041202
  Transmission Date: 20050328
  Serious: Yes (Other)
  Sender: FDA-Public Use
  Company Number: US-GLAXOSMITHKLINE-A0535878A

PATIENT
  Age: 9 Year
  Sex: Female

DRUGS (1)
  1. ZANTAC [Suspect]
     Dosage: 5ML FOUR TIMES PER DAY
     Route: 048

REACTIONS (8)
  - ABDOMINAL PAIN [None]
  - ABNORMAL BEHAVIOUR [None]
  - DIARRHOEA [None]
  - DYSPHAGIA [None]
  - HALLUCINATION [None]
  - INSOMNIA [None]
  - MUSCLE CRAMP [None]
  - PHARMACEUTICAL PRODUCT COMPLAINT [None]
